FAERS Safety Report 4407484-3 (Version None)
Quarter: 2004Q3

REPORT INFORMATION
  Report Type: 
  Country: None (occurrence: None)
  Receive Date: 20040721
  Receipt Date: 20040701
  Transmission Date: 20050211
  Serious: Yes (Death)
  Sender: FDA-Public Use
  Company Number: EWC040438798

PATIENT
  Age: 72 Year
  Sex: Male

DRUGS (8)
  1. XIGRIS [Suspect]
     Indication: SEPSIS
     Dates: start: 20040315, end: 20040318
  2. XIGRIS [Suspect]
     Indication: SEPSIS
     Dates: start: 20040331, end: 20040403
  3. NORADRENALINE [Concomitant]
  4. DOPAMINE HCL [Concomitant]
  5. FRAXIPARINA (NADROPARIN CALCIUM) [Concomitant]
  6. VANCOMYCIN [Concomitant]
  7. VORICONAZOLE [Concomitant]
  8. CEFTAZIDIME [Concomitant]

REACTIONS (14)
  - ABSCESS [None]
  - CHOLECYSTITIS [None]
  - COLITIS ISCHAEMIC [None]
  - ENTERITIS [None]
  - HAEMATOMA [None]
  - HAEMORRHAGE [None]
  - HYDRONEPHROSIS [None]
  - MULTI-ORGAN FAILURE [None]
  - PLEURAL DISORDER [None]
  - PLEURISY [None]
  - PNEUMONIA [None]
  - PROSTATIC ADENOMA [None]
  - PULMONARY HAEMORRHAGE [None]
  - RENAL ARTERY ATHEROSCLEROSIS [None]
